FAERS Safety Report 6164562-9 (Version None)
Quarter: 2009Q2

REPORT INFORMATION
  Report Type: 
  Country: None (occurrence: None)
  Receive Date: 20090423
  Receipt Date: 20090409
  Transmission Date: 20091009
  Serious: Yes (Other)
  Sender: FDA-Public Use
  Company Number: FR-RANBAXY-2009RR-21677

PATIENT

DRUGS (1)
  1. METOPROLOL SUCCINATE [Suspect]

REACTIONS (1)
  - MIGRAINE [None]
